FAERS Safety Report 10607701 (Version 1)
Quarter: 2014Q4

REPORT INFORMATION
  Report Type: Spontaneous
  Country: US (occurrence: None)
  Receive Date: 20141124
  Receipt Date: 20141124
  Transmission Date: 20150529
  Serious: Yes (Hospitalization)
  Sender: FDA-Public Use
  Company Number: None

PATIENT
  Age: 67 Year
  Sex: Female

DRUGS (9)
  1. BONIVA [Suspect]
     Active Substance: IBANDRONATE SODIUM
     Indication: OSTEOPOROSIS
     Dosage: 1 TABLET, MONTHLY, ORAL
     Route: 048
  2. FOSAMAX [Suspect]
     Active Substance: ALENDRONATE SODIUM
     Indication: OSTEOPOROSIS
     Dosage: 1 TABLET, WEEKLY, ORAL
     Route: 048
  3. ALLEGRA [Concomitant]
     Active Substance: FEXOFENADINE HYDROCHLORIDE
  4. RALOXIFINE [Concomitant]
  5. CALCIUM [Concomitant]
     Active Substance: CALCIUM
  6. VITAMIN D [Concomitant]
     Active Substance: CHOLECALCIFEROL
  7. ASPIRIN. [Concomitant]
     Active Substance: ASPIRIN
  8. LOTRELL [Concomitant]
  9. BONIVA [Concomitant]
     Active Substance: IBANDRONATE SODIUM

REACTIONS (3)
  - Pain in extremity [None]
  - Impaired healing [None]
  - Stress fracture [None]

NARRATIVE: CASE EVENT DATE: 20140530
